FAERS Safety Report 18846786 (Version 1)
Quarter: 2021Q1

REPORT INFORMATION
  Report Type: Spontaneous
  Country: FR (occurrence: FR)
  Receive Date: 20210204
  Receipt Date: 20210204
  Transmission Date: 20210419
  Serious: Yes (Hospitalization)
  Sender: FDA-Public Use
  Company Number: FR-AMGEN-FRASP2021013178

PATIENT
  Age: 75 Year
  Sex: Female
  Weight: 66 kg

DRUGS (1)
  1. KYPROLIS [Suspect]
     Active Substance: CARFILZOMIB
     Indication: PLASMA CELL MYELOMA
     Dosage: D1 D2 AT 20 MG / M? AND D8 D9 D15 D16 AT 56 MG / M?
     Route: 041
     Dates: start: 20170221, end: 20171128

REACTIONS (1)
  - Focal segmental glomerulosclerosis [Recovered/Resolved with Sequelae]

NARRATIVE: CASE EVENT DATE: 20171220
